FAERS Safety Report 9476405 (Version 1)
Quarter: 2013Q3

REPORT INFORMATION
  Report Type: Report from Study
  Country: DK (occurrence: DK)
  Receive Date: 20130826
  Receipt Date: 20130826
  Transmission Date: 20140515
  Serious: Yes (Death)
  Sender: FDA-Public Use
  Company Number: DK-UCBSA-095962

PATIENT
  Sex: Male

DRUGS (2)
  1. ROTIGOTINE [Suspect]
     Dosage: UNKNOWN DOSE
  2. CARBIDOPA/LEVODOPA/ENTACAPONE [Concomitant]
     Dosage: UNKNOWN DOSE

REACTIONS (1)
  - Death [Fatal]
